FAERS Safety Report 8602226 (Version 2)
Quarter: 2013Q3

REPORT INFORMATION
  Report Type: Spontaneous
  Country: CA (occurrence: CA)
  Receive Date: 20120607
  Receipt Date: 20130718
  Transmission Date: 20140515
  Serious: Yes (Hospitalization, Other)
  Sender: FDA-Public Use
  Company Number: CA-JNJFOC-20120520127

PATIENT
  Age: 22 Year
  Sex: Female
  Weight: 57.7 kg

DRUGS (6)
  1. REMICADE [Suspect]
     Indication: COLITIS ULCERATIVE
     Dosage: 5TH INFUSION
     Route: 042
  2. REMICADE [Suspect]
     Indication: COLITIS ULCERATIVE
     Route: 042
     Dates: start: 20111216
  3. REMICADE [Suspect]
     Indication: COLITIS ULCERATIVE
     Dosage: 4TH INFUSION
     Route: 042
     Dates: start: 20120404
  4. PREDNISONE [Concomitant]
     Dosage: SMALL DOSE, TAPERING
     Route: 048
  5. MEZAVANT [Concomitant]
     Route: 065
  6. IMURAN [Concomitant]
     Route: 048

REACTIONS (4)
  - Sepsis [Recovered/Resolved]
  - Heart rate increased [Recovered/Resolved]
  - Colitis ulcerative [Recovered/Resolved]
  - Pyrexia [Recovered/Resolved]
